FAERS Safety Report 24263704 (Version 2)
Quarter: 2024Q3

REPORT INFORMATION
  Report Type: Spontaneous
  Country: IT (occurrence: IT)
  Receive Date: 20240829
  Receipt Date: 20240917
  Transmission Date: 20241017
  Serious: Yes (Death, Life-Threatening, Hospitalization, Other)
  Sender: GRIFOLS
  Company Number: IT-BAXTER-2024BAX021665

PATIENT
  Age: 57 Year
  Sex: Female
  Weight: 70 kg

DRUGS (67)
  1. ALBUMIN HUMAN [Concomitant]
     Active Substance: ALBUMIN HUMAN
     Indication: Product used for unknown indication
     Dosage: UNK
     Route: 065
     Dates: start: 20240530
  2. PIPERACILLIN SODIUM\SULBACTAM SODIUM [Concomitant]
     Active Substance: PIPERACILLIN SODIUM\SULBACTAM SODIUM
     Dosage: UNK
     Route: 065
     Dates: start: 20240507, end: 20240519
  3. VINCRISTINE [Suspect]
     Active Substance: VINCRISTINE
     Indication: Richter^s syndrome
     Dosage: 1.4 MG/SQ. METER (RECOMMENDED CAP OF 2 MG) 1Q3W AS PART OF R-CHOP, START TIME: 16:36, C1D1;
     Dates: start: 20240524, end: 20240524
  4. CANRENOATE POTASSIUM [Concomitant]
     Active Substance: CANRENOATE POTASSIUM
     Dosage: UNK
     Route: 065
     Dates: start: 20240501, end: 20240503
  5. FILGRASTIM [Concomitant]
     Active Substance: FILGRASTIM
     Dosage: UNK
     Route: 065
     Dates: start: 20240507, end: 20240512
  6. NEOSTIGMINE METHYLSULFATE [Concomitant]
     Active Substance: NEOSTIGMINE METHYLSULFATE
     Dosage: UNK
     Route: 065
     Dates: start: 20240603, end: 20240604
  7. PALONOSETRON [Concomitant]
     Active Substance: PALONOSETRON
     Dosage: UNK
     Route: 065
     Dates: start: 20240502, end: 20240502
  8. POLASE [MAGNESIUM ASPARTATE;POTASSIUM ASPARTATE] [Concomitant]
     Dosage: UNK
     Route: 065
     Dates: start: 20240525
  9. RASBURICASE [Concomitant]
     Active Substance: RASBURICASE
     Dosage: UNK
     Route: 065
     Dates: start: 20240430
  10. PIPERACILLIN AND TAZOBACTAM [Concomitant]
     Active Substance: PIPERACILLIN SODIUM\TAZOBACTAM SODIUM
     Dosage: UNK, ONGOING
     Route: 065
     Dates: start: 20240507, end: 20240519
  11. VORICONAZOLE [Concomitant]
     Active Substance: VORICONAZOLE
     Dosage: UNK
     Route: 065
     Dates: start: 20240519
  12. DIHYDROCODEINE;PENTETRAZOL [Concomitant]
     Dosage: UNK
     Route: 065
     Dates: start: 20240516, end: 20240529
  13. TRAMADOL [Concomitant]
     Active Substance: TRAMADOL\TRAMADOL HYDROCHLORIDE
     Dosage: UNK
     Route: 065
     Dates: start: 20240516
  14. DEXAMETHASONE [Concomitant]
     Active Substance: DEXAMETHASONE
     Dosage: UNK
     Route: 065
     Dates: start: 202405, end: 202405
  15. FUROSEMIDE [Concomitant]
     Active Substance: FUROSEMIDE
     Dosage: UNK
     Route: 065
     Dates: start: 20240430, end: 20240503
  16. PANTOPRAZOLE [Concomitant]
     Active Substance: PANTOPRAZOLE
     Dosage: UNK
     Route: 065
     Dates: start: 20240501
  17. OXYGEN [Suspect]
     Active Substance: OXYGEN
     Dosage: WITH NASAL CANNULA DUE TO THERAPEUTIC REASON (NOT SPECIFIED)
     Route: 065
     Dates: start: 20240430
  18. ACETYLCYSTEINE [Concomitant]
     Active Substance: ACETYLCYSTEINE
     Dosage: UNK
     Route: 065
     Dates: start: 20240531
  19. TOCILIZUMAB [Concomitant]
     Active Substance: TOCILIZUMAB
     Dosage: UNK
     Route: 065
     Dates: start: 20240601
  20. CALCIUM CHLORIDE DIHYDRATE;POTASSIUM CHLORIDE;SODIUM ACETATE TRIHYDRAT [Concomitant]
     Dosage: UNK
     Route: 065
     Dates: start: 20240530
  21. CEFTRIAXONE [Concomitant]
     Active Substance: CEFTRIAXONE\CEFTRIAXONE SODIUM
     Dosage: UNK
     Route: 065
     Dates: start: 20240504, end: 20240507
  22. INSULIN HUMAN [Concomitant]
     Active Substance: INSULIN HUMAN
     Dosage: UNK, ONGOING
     Route: 065
     Dates: start: 20240530
  23. METOCLOPRAMIDE [Concomitant]
     Active Substance: METOCLOPRAMIDE
     Dosage: UNK
     Route: 065
     Dates: start: 20240530, end: 20240604
  24. CYCLOPHOSPHAMIDE [Suspect]
     Active Substance: CYCLOPHOSPHAMIDE
     Indication: Richter^s syndrome
     Dosage: 750 MG/SQ. METER Q3W, DOSAGE FORM: POWDER FOR SOLUTION FOR INJECTION, AS PART OF R-CHOP, CYCLE 1 DAY
     Dates: start: 20240524, end: 20240524
  25. CYCLOPHOSPHAMIDE [Suspect]
     Active Substance: CYCLOPHOSPHAMIDE
     Dosage: UNK
     Route: 065
     Dates: start: 20240502, end: 20240502
  26. ACETAMINOPHEN [Concomitant]
     Active Substance: ACETAMINOPHEN
     Indication: Premedication
     Dosage: 1 GRAM
     Dates: start: 20240524, end: 20240531
  27. ACETAMINOPHEN [Concomitant]
     Active Substance: ACETAMINOPHEN
     Dosage: 1 GRAM
     Dates: start: 20240506
  28. ACETAMINOPHEN [Concomitant]
     Active Substance: ACETAMINOPHEN
     Dosage: 1 GRAM
     Dates: start: 20240531
  29. CHLORPHENIRAMINE MALEATE [Concomitant]
     Active Substance: CHLORPHENIRAMINE MALEATE
     Indication: Premedication
     Dosage: 10 MILLIGRAM
     Dates: start: 20240524, end: 20240531
  30. AMINO ACIDS, SOURCE UNSPECIFIED [Concomitant]
     Active Substance: AMINO ACIDS, SOURCE UNSPECIFIED
     Dosage: UNK
     Route: 065
     Dates: start: 20240501, end: 20240530
  31. CHOLECALCIFEROL [Concomitant]
     Active Substance: CHOLECALCIFEROL
     Dosage: UNK
     Route: 065
     Dates: start: 20240523
  32. ENOXAPARIN [Concomitant]
     Active Substance: ENOXAPARIN
     Dosage: UNK
     Route: 065
     Dates: start: 20240430, end: 20240509
  33. CALCIUM CHLORIDE [Concomitant]
     Active Substance: CALCIUM CHLORIDE
     Dosage: UNK
     Route: 065
     Dates: start: 20240604
  34. DEXAMETHASONE PHOSPHATE [Concomitant]
     Active Substance: DEXAMETHASONE PHOSPHATE
     Dosage: UNK
     Route: 065
     Dates: start: 20240501, end: 20240506
  35. DEXAMETHASONE PHOSPHATE [Concomitant]
     Active Substance: DEXAMETHASONE PHOSPHATE
     Dosage: UNK
     Route: 065
     Dates: start: 20240524, end: 20240604
  36. ACYCLOVIR [Concomitant]
     Active Substance: ACYCLOVIR
     Dosage: UNK
     Route: 065
     Dates: start: 20240430
  37. ACETAMINOPHEN [Concomitant]
     Active Substance: ACETAMINOPHEN
     Dosage: UNK
     Route: 065
     Dates: start: 20240507
  38. PREDNISONE [Suspect]
     Active Substance: PREDNISONE
     Indication: Richter^s syndrome
     Dosage: Q3W, AS PART OF R-CHOP REGIMEN
  39. PREDNISONE [Suspect]
     Active Substance: PREDNISONE
     Dosage: D1-D5 WEEKLY AS PART OF R-CHOP REGIMEN, IV OR ORALLY
     Route: 050
  40. BACTRIM [Concomitant]
     Active Substance: SULFAMETHOXAZOLE\TRIMETHOPRIM
     Dosage: UNK
     Route: 065
     Dates: start: 20240530, end: 20240603
  41. LEVOFLOXACIN [Concomitant]
     Active Substance: LEVOFLOXACIN
     Dosage: START DATE: MAY-2024, ONGOING
     Route: 065
     Dates: start: 20240511, end: 20240519
  42. AMPHOTERICIN B [Concomitant]
     Active Substance: AMPHOTERICIN B
     Dosage: UNK
     Route: 065
     Dates: start: 20240530
  43. RITUXIMAB [Concomitant]
     Active Substance: RITUXIMAB
     Indication: Richter^s syndrome
     Dosage: UNK
     Route: 065
     Dates: start: 20240506, end: 20240506
  44. RITUXIMAB [Concomitant]
     Active Substance: RITUXIMAB
     Dosage: 375 MG/SQ.METER, 1Q3W, CYCLE 1 DAY 1 (C1D1), AS PART OF R-CHOP REGIMEN
     Dates: start: 20240524, end: 20240524
  45. OLICLINOMEL [AMINO ACIDS NOS;CARBOHYDRATES NOS;ELECTROLYTES NOS;LIPIDS [Concomitant]
     Dosage: UNK
     Route: 065
     Dates: start: 20240530
  46. CALCIUM GLUCONATE [Concomitant]
     Active Substance: CALCIUM GLUCONATE
     Dosage: UNK
     Route: 065
     Dates: start: 20240604
  47. FENTANYL [Suspect]
     Active Substance: FENTANYL\FENTANYL CITRATE
     Dosage: UNK
     Route: 065
     Dates: start: 20240530
  48. QUETIAPINE [Concomitant]
     Active Substance: QUETIAPINE
     Dosage: UNK
     Route: 065
     Dates: start: 20240604
  49. MIDAZOLAM [Concomitant]
     Active Substance: MIDAZOLAM
     Dosage: UNK
     Route: 065
     Dates: start: 20240601
  50. ALPRAZOLAM [Concomitant]
     Active Substance: ALPRAZOLAM
     Dosage: UNK
     Dates: start: 20240502
  51. ZOLEDRONIC ACID [Concomitant]
     Active Substance: ZOLEDRONIC ACID
     Dosage: UNK
     Route: 065
     Dates: start: 20240522
  52. TPN [Suspect]
     Active Substance: AMINO ACIDS\DEXTROSE\ELECTROLYTES NOS\SOYBEAN OIL
     Dosage: UNK, DUE TO THERAPEUTIC REASON
     Route: 065
     Dates: start: 20240514
  53. SODIUM SUCCINATE [Concomitant]
     Active Substance: SODIUM SUCCINATE HEXAHYDRATE
     Dosage: 500 MG (HYDROCORTISONE))
     Dates: start: 20240531, end: 20240601
  54. HYDROCORTISONE [Concomitant]
     Active Substance: HYDROCORTISONE\HYDROCORTISONE ACETATE
     Dosage: UNK
     Route: 065
     Dates: start: 20240506, end: 20240506
  55. MEROPENEM [Concomitant]
     Active Substance: MEROPENEM
     Dosage: UNK
     Route: 065
     Dates: start: 20240519
  56. VANCOMYCIN [Concomitant]
     Active Substance: VANCOMYCIN
     Dosage: UNK, ONGOING
     Route: 065
     Dates: start: 20240509, end: 20240518
  57. CASPOFUNGIN [Concomitant]
     Active Substance: CASPOFUNGIN
     Dosage: UNK
     Route: 065
     Dates: start: 20240511
  58. LEVOSULPIRIDE [Concomitant]
     Active Substance: LEVOSULPIRIDE
     Dosage: UNK
     Route: 065
     Dates: start: 20240503
  59. DELORAZEPAM [Concomitant]
     Active Substance: DELORAZEPAM
     Dosage: UNK
     Route: 065
     Dates: start: 20240601
  60. DOXORUBICIN HYDROCHLORIDE [Suspect]
     Active Substance: DOXORUBICIN HYDROCHLORIDE
     Indication: Richter^s syndrome
     Dosage: 50 MG/SQ. METER Q3W, SOLUTION FOR INFUSION, AS PART OF R-CHOP REGIMEN, CYCLE 1 DAY 1 START TIME: 16:
     Dates: start: 20240524, end: 20240524
  61. DOXORUBICIN HYDROCHLORIDE [Suspect]
     Active Substance: DOXORUBICIN HYDROCHLORIDE
     Dosage: UNK
     Route: 065
     Dates: start: 20240502, end: 20240502
  62. LINEZOLID [Concomitant]
     Active Substance: LINEZOLID
     Dosage: UNK
     Route: 065
     Dates: start: 20240518
  63. CITALOPRAM [Concomitant]
     Active Substance: CITALOPRAM\CITALOPRAM HYDROBROMIDE
     Dosage: UNK
     Route: 065
     Dates: start: 20240601
  64. EPCORITAMAB [Suspect]
     Active Substance: EPCORITAMAB
     Indication: Richter^s syndrome
     Dosage: 0.16 MG PRIMING DOSE ON C1D1, WEEKLY, START TIME:
     Dates: start: 20240524, end: 20240524
  65. EPCORITAMAB [Suspect]
     Active Substance: EPCORITAMAB
     Dosage: 0.8 MG INTERMEDIATE DOSE ON C1D8, WEEKLY, START TIME 11:58
     Dates: start: 20240531, end: 20240531
  66. EPCORITAMAB [Suspect]
     Active Substance: EPCORITAMAB
     Dosage: UNK, WEEKLY, C1D8
     Dates: start: 20240531, end: 20240531
  67. BECLOMETHASONE DIPROPIONATE [Concomitant]
     Active Substance: BECLOMETHASONE DIPROPIONATE
     Dosage: UNK
     Route: 065
     Dates: start: 20240601

REACTIONS (13)
  - Flatulence [Fatal]
  - Gastric dilatation [Fatal]
  - General physical health deterioration [Unknown]
  - Pyrexia [Fatal]
  - Urine abnormality [Fatal]
  - Haemoperitoneum [Fatal]
  - Immunosuppression [Unknown]
  - Chromaturia [Fatal]
  - Necrotising colitis [Fatal]
  - Respiratory failure [Fatal]
  - Hypotension [Fatal]
  - Blood test abnormal [Fatal]
  - Abdominal distension [Fatal]

NARRATIVE: CASE EVENT DATE: 20240530
